FAERS Safety Report 5833137-0 (Version None)
Quarter: 2008Q3

REPORT INFORMATION
  Report Type: 
  Country: None (occurrence: None)
  Receive Date: 20080731
  Receipt Date: 20080721
  Transmission Date: 20090109
  Serious: Yes (Other)
  Sender: FDA-Public Use
  Company Number: 2008AL008436

PATIENT
  Age: 73 Year
  Sex: Male
  Weight: 72.5755 kg

DRUGS (4)
  1. DIGOXIN [Suspect]
     Indication: CARDIAC DISORDER
     Dosage: 0.25MG, DAILY, PO
     Route: 048
     Dates: start: 20060503, end: 20080113
  2. DIGOXIN [Suspect]
     Indication: CARDIAC DISORDER
     Dosage: 0.25MG, DAILY, PO
     Route: 048
     Dates: start: 20050505, end: 20080203
  3. CRESTOR [Concomitant]
  4. ASPIRIN [Concomitant]

REACTIONS (4)
  - FATIGUE [None]
  - LETHARGY [None]
  - SENSATION OF HEAVINESS [None]
  - VISUAL IMPAIRMENT [None]
